FAERS Safety Report 4784547-4 (Version None)
Quarter: 2005Q3

REPORT INFORMATION
  Report Type: 
  Country: None (occurrence: None)
  Receive Date: 20050930
  Receipt Date: 20050923
  Transmission Date: 20060218
  Serious: Yes (Hospitalization, Other)
  Sender: FDA-Public Use
  Company Number: US-JNJFOC-20050906186

PATIENT
  Sex: Female
  Weight: 49.44 kg

DRUGS (15)
  1. FENTANYL [Suspect]
     Route: 062
  2. FENTANYL [Suspect]
     Route: 062
  3. FENTANYL [Suspect]
     Route: 062
  4. FENTANYL [Suspect]
     Route: 062
  5. QUINAPRIL [Concomitant]
     Indication: HYPERTENSION
     Dosage: TAKES ONLY IF BLOOD PRESSURE IS ELEVATED ABOVE 120
     Route: 048
  6. SYNTHROID [Concomitant]
     Indication: HYPOTHYROIDISM
     Route: 048
  7. PREDNISONE [Concomitant]
     Indication: PAIN
     Route: 048
  8. NEXIUM [Concomitant]
     Route: 048
  9. REGLAN [Concomitant]
     Route: 048
  10. ZETIA [Concomitant]
     Route: 048
  11. MIACALCIN [Concomitant]
     Route: 055
  12. NITROGLYCERIN [Concomitant]
     Indication: ANGINA PECTORIS
     Dosage: AS NEEDED
     Route: 048
  13. NEURONTIN [Concomitant]
     Indication: PAIN
     Route: 048
  14. DARVOCET [Concomitant]
  15. DARVOCET [Concomitant]
     Indication: PAIN
     Dosage: 100/650 MG, 4 IN 24 HOURS AS NEEDED

REACTIONS (8)
  - ANGINA PECTORIS [None]
  - DEHYDRATION [None]
  - DYSPHAGIA [None]
  - DYSPNOEA [None]
  - GASTRIC HYPOMOTILITY [None]
  - HEART RATE INCREASED [None]
  - PAIN IN JAW [None]
  - THERAPEUTIC RESPONSE DECREASED [None]
